FAERS Safety Report 5090926-0 (Version None)
Quarter: 2006Q3

REPORT INFORMATION
  Report Type: 
  Country: None (occurrence: None)
  Receive Date: 20060823
  Receipt Date: 20060807
  Transmission Date: 20061208
  Serious: Yes (Hospitalization)
  Sender: FDA-Public Use
  Company Number: US200608002081

PATIENT
  Sex: Female
  Weight: 90.2 kg

DRUGS (1)
  1. ZYPREXA [Suspect]
     Dosage: 25 MG
     Dates: start: 20000101, end: 20010101

REACTIONS (7)
  - CARDIAC OPERATION [None]
  - DIABETES MELLITUS [None]
  - HYPERTENSION [None]
  - OBESITY [None]
  - PRESCRIBED OVERDOSE [None]
  - SURGERY [None]
  - VISION BLURRED [None]
